FAERS Safety Report 5346586-4 (Version None)
Quarter: 2007Q2

REPORT INFORMATION
  Report Type: 
  Country: None (occurrence: None)
  Receive Date: 20070430
  Receipt Date: 20070327
  Transmission Date: 20071010
  Serious: No
  Sender: FDA-Public Use
  Company Number: 262157

PATIENT
  Age: 71 Year
  Sex: Female

DRUGS (7)
  1. LEVEMIR [Suspect]
     Indication: DIABETES MELLITUS
     Dosage: SEE IMAGE
     Route: 058
     Dates: start: 20061201
  2. HYZAAR [Concomitant]
  3. TRICOR [Concomitant]
  4. PRAVACHOL [Concomitant]
  5. THYROID THERAPY [Concomitant]
  6. NEXIUM [Concomitant]
  7. ESTRACE [Concomitant]

REACTIONS (3)
  - DYSPNOEA [None]
  - FATIGUE [None]
  - HYPERHIDROSIS [None]
